FAERS Safety Report 9416525 (Version 2)
Quarter: 2013Q3

REPORT INFORMATION
  Report Type: Spontaneous
  Country: US (occurrence: US)
  Receive Date: 20130724
  Receipt Date: 20130820
  Transmission Date: 20140515
  Serious: No
  Sender: FDA-Public Use
  Company Number: US-009507513-1307USA012757

PATIENT
  Age: 8 Year
  Sex: Male
  Weight: 40.82 kg

DRUGS (3)
  1. MIRALAX [Suspect]
     Indication: FAECES HARD
     Dosage: 17 G, BID
     Route: 048
     Dates: start: 201305
  2. MIRALAX [Suspect]
     Indication: MEDICAL OBSERVATION
     Dosage: 17 G, QD
     Route: 048
     Dates: start: 201306
  3. MAGNESIA [MILK OF] [Concomitant]
     Indication: PRODUCT USED FOR UNKNOWN INDICATION
     Route: 048

REACTIONS (4)
  - Overdose [Unknown]
  - Inappropriate schedule of drug administration [Unknown]
  - Drug administered to patient of inappropriate age [Unknown]
  - Off label use [Unknown]
